FAERS Safety Report 4560994-0 (Version None)
Quarter: 2005Q1

REPORT INFORMATION
  Report Type: 
  Country: None (occurrence: None)
  Receive Date: 20050126
  Receipt Date: 20040526
  Transmission Date: 20050727
  Serious: No
  Sender: FDA-Public Use
  Company Number: US-BRISTOL-MYERS SQUIBB COMPANY-12597175

PATIENT
  Age: 60 Year
  Sex: Female
  Weight: 82 kg

DRUGS (6)
  1. GLUCOPHAGE [Suspect]
     Indication: DIABETES MELLITUS
     Route: 048
     Dates: start: 20040501, end: 20040523
  2. MAXZIDE [Concomitant]
  3. CARBOPLATIN [Concomitant]
  4. ETOPOSIDE [Concomitant]
  5. ZOFRAN [Concomitant]
  6. DEXAMETHASONE [Concomitant]

REACTIONS (1)
  - BLOOD GLUCOSE INCREASED [None]
